FAERS Safety Report 17949316 (Version 3)
Quarter: 2020Q3

REPORT INFORMATION
  Report Type: Spontaneous
  Country: DE (occurrence: DE)
  Receive Date: 20200626
  Receipt Date: 20200811
  Transmission Date: 20201103
  Serious: Yes (Other)
  Sender: FDA-Public Use
  Company Number: DE-BAYER-2020-127960

PATIENT
  Age: 23 Year
  Sex: Female
  Weight: 45 kg

DRUGS (1)
  1. JAYDESS [Suspect]
     Active Substance: LEVONORGESTREL
     Indication: CONTRACEPTION
     Dosage: 14 ?G PER DAY, CONTIONUOUSLY
     Route: 015
     Dates: start: 20170125

REACTIONS (5)
  - Complication of device insertion [None]
  - Complication of device removal [None]
  - Device use issue [None]
  - Device breakage [None]
  - Circulatory collapse [None]

NARRATIVE: CASE EVENT DATE: 20170125
